FAERS Safety Report 24238433 (Version 1)
Quarter: 2024Q3

REPORT INFORMATION
  Report Type: Spontaneous
  Country: US (occurrence: US)
  Receive Date: 20240822
  Receipt Date: 20240822
  Transmission Date: 20241017
  Serious: No
  Sender: TEVA
  Company Number: US-TEVA-VS-3230439

PATIENT
  Age: 55 Year
  Sex: Male

DRUGS (1)
  1. AUSTEDO XR [Suspect]
     Active Substance: DEUTETRABENAZINE
     Indication: Product used for unknown indication
     Dosage: 4-WEEK PATIENT TITRATION KIT, ^DAY 4 OF THE 12 MG DOSE^ OF THE TITRATION PACK
     Route: 065

REACTIONS (2)
  - Agitation [Unknown]
  - Anger [Unknown]
